FAERS Safety Report 5565614-4 (Version None)
Quarter: 2007Q4

REPORT INFORMATION
  Report Type: 
  Country: None (occurrence: None)
  Receive Date: 20071218
  Receipt Date: 20071128
  Transmission Date: 20080405
  Serious: No
  Sender: FDA-Public Use
  Company Number: US-BOEHRINGER INGELHEIM PHARMACEUTICALS, INC.-2007-BP-25244BP

PATIENT
  Age: 70 Year
  Sex: Female

DRUGS (10)
  1. AGGRENOX [Suspect]
     Indication: CEREBROVASCULAR ACCIDENT
     Route: 048
     Dates: start: 20071001
  2. PERCOCET [Concomitant]
  3. ZOCOR [Concomitant]
  4. BONIVA [Concomitant]
  5. CELEBREX [Concomitant]
  6. CYTOMOL [Concomitant]
  7. FOLIC ACID [Concomitant]
  8. PREVACID [Concomitant]
  9. ACCUPRIL [Concomitant]
  10. POTASSIUM CHLORIDE [Concomitant]

REACTIONS (1)
  - HEADACHE [None]
